FAERS Safety Report 10490629 (Version 4)
Quarter: 2015Q3

REPORT INFORMATION
  Report Type: Spontaneous
  Country: US (occurrence: US)
  Receive Date: 20141002
  Receipt Date: 20150928
  Transmission Date: 20151125
  Serious: Yes (Other)
  Sender: FDA-Public Use
  Company Number: US-GLAXOSMITHKLINE-A0994041A

PATIENT
  Age: 61 Year
  Sex: Female

DRUGS (6)
  1. ADVAIR DISKUS [Suspect]
     Active Substance: FLUTICASONE PROPIONATE\SALMETEROL XINAFOATE
     Indication: WHEEZING
  2. VERAMYST [Suspect]
     Active Substance: FLUTICASONE FUROATE
     Indication: PRODUCT USED FOR UNKNOWN INDICATION
     Route: 065
  3. ADVAIR HFA [Suspect]
     Active Substance: FLUTICASONE PROPIONATE\SALMETEROL XINAFOATE
     Indication: ASTHMA
     Dosage: TRIED 45/21 MCG AND 115/21; TRIED 230/21 BUT IT WAS TOO STRONGON 115/21 MCG AT LAST FU ON 14 JU[...]
     Route: 055
  4. ADVAIR DISKUS [Suspect]
     Active Substance: FLUTICASONE PROPIONATE\SALMETEROL XINAFOATE
     Indication: ASTHMA
     Dosage: 100/50, TRIED 250/50 BUT WAS TOO STRONG.
     Route: 055
     Dates: start: 1998
  5. SEREVENT DISKUS [Suspect]
     Active Substance: SALMETEROL XINAFOATE
     Indication: ASTHMA
     Route: 055
     Dates: start: 2012
  6. NEXIUM [Suspect]
     Active Substance: ESOMEPRAZOLE MAGNESIUM
     Indication: ILL-DEFINED DISORDER
     Route: 048
     Dates: start: 1999

REACTIONS (16)
  - Oropharyngeal discomfort [Unknown]
  - Immune system disorder [Unknown]
  - Dyspnoea [Unknown]
  - Mucous membrane disorder [Unknown]
  - Candida infection [Unknown]
  - Oral mucosal erythema [Unknown]
  - Pain [Unknown]
  - Drug ineffective [Unknown]
  - Oral disorder [Unknown]
  - Cough [Unknown]
  - Lung infection [Unknown]
  - Glossodynia [Unknown]
  - Pharyngitis streptococcal [Unknown]
  - Adverse event [Unknown]
  - Nasopharyngitis [Recovered/Resolved]
  - Oral pain [Unknown]

NARRATIVE: CASE EVENT DATE: 20120906
